FAERS Safety Report 18490471 (Version 1)
Quarter: 2020Q4

REPORT INFORMATION
  Report Type: Spontaneous
  Country: FR (occurrence: FR)
  Receive Date: 20201111
  Receipt Date: 20201111
  Transmission Date: 20210114
  Serious: Yes (Other)
  Sender: FDA-Public Use
  Company Number: FR-TEVA-2020-FR-1846584

PATIENT
  Age: 56 Year
  Sex: Male

DRUGS (3)
  1. PRAZEPAM [Suspect]
     Active Substance: PRAZEPAM
     Indication: SUICIDE ATTEMPT
     Dosage: UNIT DOSE :72DF
     Route: 048
     Dates: start: 20200604, end: 20200604
  2. TERALITHE [Suspect]
     Active Substance: LITHIUM CARBONATE
     Indication: SUICIDE ATTEMPT
     Dosage: UNIT DOSE 93DF
     Route: 048
     Dates: start: 20200604, end: 20200604
  3. MIRTAZAPINE. [Suspect]
     Active Substance: MIRTAZAPINE
     Indication: SUICIDE ATTEMPT
     Dosage: UNIT DOSE 57DF
     Route: 048
     Dates: start: 20200604, end: 20200604

REACTIONS (3)
  - Vomiting [Recovered/Resolved]
  - Antipsychotic drug level increased [Recovered/Resolved]
  - Toxicity to various agents [Recovered/Resolved]

NARRATIVE: CASE EVENT DATE: 20200604
